FAERS Safety Report 6470963 (Version 18)
Quarter: 2013Q1

REPORT INFORMATION
  Report Type: Spontaneous
  Country: US (occurrence: US)
  Receive Date: 20071119
  Receipt Date: 20130102
  Transmission Date: 20140127
  Serious: Yes (Congenital Anomaly, Other)
  Sender: FDA-Public Use
  Company Number: US-PFIZER INC-2007095299

PATIENT
  Sex: Male
  Weight: 3.63 kg

DRUGS (11)
  1. ZOLOFT [Suspect]
     Indication: DEPRESSION
     Dosage: 50 MG, DAILY
     Route: 064
     Dates: start: 19950501, end: 199609
  2. ZOLOFT [Suspect]
     Dosage: 100 MG, 1X/DAY
     Route: 064
     Dates: start: 199609
  3. ZITHROMAX [Concomitant]
     Dosage: UNK
     Route: 064
  4. SYNTHROID [Concomitant]
     Dosage: 0.175 MG, 1X/DAY
     Route: 064
  5. TYLENOL [Concomitant]
     Dosage: UNK
     Route: 064
  6. IBUPROFEN [Concomitant]
     Dosage: UNK
     Route: 064
  7. PRENATAL VITAMINS [Concomitant]
     Dosage: UNK
     Route: 064
  8. LEVOTHYROXIN [Concomitant]
     Dosage: UNK
     Route: 064
  9. MERIDIA [Concomitant]
     Dosage: UNK
     Route: 064
  10. ALBUTEROL [Concomitant]
     Dosage: UNK
     Route: 064
  11. BENZONATATE [Concomitant]
     Dosage: UNK
     Route: 064

REACTIONS (10)
  - Foetal exposure during pregnancy [Recovered/Resolved with Sequelae]
  - Hypoplastic right heart syndrome [Recovered/Resolved with Sequelae]
  - Pulmonary artery atresia [Unknown]
  - Patent ductus arteriosus [Unknown]
  - Congenital coronary artery malformation [Unknown]
  - Congenital anomaly [Unknown]
  - Atrial septal defect [Unknown]
  - Wound infection [Unknown]
  - Dilatation ventricular [Unknown]
  - Pleural effusion [Unknown]
